FAERS Safety Report 23973325 (Version 1)
Quarter: 2024Q2

REPORT INFORMATION
  Report Type: Report from Study
  Country: BE (occurrence: BE)
  Receive Date: 20240613
  Receipt Date: 20240613
  Transmission Date: 20240716
  Serious: Yes (Death)
  Sender: FDA-Public Use
  Company Number: BE-ABBVIE-5799304

PATIENT
  Age: 74 Year
  Sex: Male
  Weight: 71 kg

DRUGS (12)
  1. CARBIDOPA\LEVODOPA [Suspect]
     Active Substance: CARBIDOPA\LEVODOPA
     Indication: Parkinson^s disease
     Dosage: MD: 6.0ML, CD: 2.9ML/H, ED: 2.40ML DURING 16 HOURS
     Route: 050
     Dates: start: 20231103, end: 20231109
  2. CARBIDOPA\LEVODOPA [Suspect]
     Active Substance: CARBIDOPA\LEVODOPA
     Route: 050
     Dates: start: 20170227
  3. CARBIDOPA\LEVODOPA [Suspect]
     Active Substance: CARBIDOPA\LEVODOPA
     Dosage: MD: 4.5ML, CD: 2.8ML/H, ED: 2.00ML DURING 16 HOURS
     Route: 050
     Dates: start: 20231023, end: 20231103
  4. CARBIDOPA\LEVODOPA [Suspect]
     Active Substance: CARBIDOPA\LEVODOPA
     Dosage: MD: 4.5ML, CD: 2.5ML/H, ED: 1.70ML DURING 16 HOURS
     Route: 050
     Dates: start: 20230920, end: 20231023
  5. CARBIDOPA\LEVODOPA [Suspect]
     Active Substance: CARBIDOPA\LEVODOPA
     Dosage: MD: 4.5ML, CD: 2.5ML/H, ED: 2.20ML DURING 16 HOURS
     Route: 050
     Dates: start: 20230626, end: 20230920
  6. CARBIDOPA\LEVODOPA [Suspect]
     Active Substance: CARBIDOPA\LEVODOPA
     Dosage: MD: 6.0ML, CD: 2.9ML/H, ED: 2.00ML DURING 16 HOURS
     Route: 050
     Dates: start: 20231109, end: 20240609
  7. CARBIDOPA\LEVODOPA [Suspect]
     Active Substance: CARBIDOPA\LEVODOPA
     Dosage: MD: 5.5ML, CD: 2.9ML/H, ED: 2.50ML DURING 16 HOURS
     Route: 050
     Dates: start: 20230612, end: 20230626
  8. XADAGO [Concomitant]
     Active Substance: SAFINAMIDE MESYLATE
     Indication: Product used for unknown indication
     Dosage: FORM STRENGTH UNITS: 100 MILLIGRAM?FREQUENCY TEXT: AT 8 HOURS
  9. BENSERAZIDE\LEVODOPA [Concomitant]
     Active Substance: BENSERAZIDE\LEVODOPA
     Indication: Product used for unknown indication
     Dosage: FORM STRENGTH UNITS: 250 MILLIGRAM?FREQUENCY TEXT: AT 8.00-11.00-14.00-17.00-20.00
  10. TRAZODONE [Concomitant]
     Active Substance: TRAZODONE HYDROCHLORIDE
     Indication: Product used for unknown indication
     Dosage: DOSE: 0.5 DOSAGE FORM?FORM STRENGTH UNITS:100 MILLIGRAM?FREQUENCY TEXT: AT 22.00
  11. BENSERAZIDE\LEVODOPA [Concomitant]
     Active Substance: BENSERAZIDE\LEVODOPA
     Indication: Product used for unknown indication
     Dosage: FORM STRENGTH UNITS:125 MILLIGRAMS? FREQUENCY TEXT: AT 22.00
  12. ESCITALOPRAM OXALATE [Concomitant]
     Active Substance: ESCITALOPRAM OXALATE
     Indication: Product used for unknown indication
     Dosage: FORM STRENGTH UNITS: 20 MILLIGRAM?FREQUENCY TEXT: AT 8 HOUR

REACTIONS (1)
  - Death [Fatal]

NARRATIVE: CASE EVENT DATE: 20240609
